FAERS Safety Report 8411797-8 (Version None)
Quarter: 2012Q2

REPORT INFORMATION
  Report Type: 
  Country: None (occurrence: None)
  Receive Date: 20120605
  Receipt Date: 20120522
  Transmission Date: 20120825
  Serious: No
  Sender: FDA-Public Use
  Company Number: US-BAYER-2012-052762

PATIENT
  Age: 60 Year
  Sex: Female
  Weight: 123 kg

DRUGS (4)
  1. ALEVE (CAPLET) [Suspect]
     Indication: MYALGIA
     Dosage: 2 U, QD
     Route: 048
     Dates: start: 20120301
  2. REQUIP [Concomitant]
  3. DIURETICS [Concomitant]
  4. FLONASE [Concomitant]

REACTIONS (3)
  - JOINT SWELLING [None]
  - OEDEMA PERIPHERAL [None]
  - NO ADVERSE EVENT [None]
